FAERS Safety Report 5017793-5 (Version None)
Quarter: 2006Q2

REPORT INFORMATION
  Report Type: 
  Country: None (occurrence: None)
  Receive Date: 20060530
  Receipt Date: 20050303
  Transmission Date: 20061013
  Serious: Yes (Disabling)
  Sender: FDA-Public Use
  Company Number: 2005040432

PATIENT
  Age: 40 Year
  Sex: Male

DRUGS (3)
  1. LYRICA [Suspect]
     Indication: EPILEPSY
     Dosage: (150 MG), ORAL
     Route: 048
     Dates: start: 20050103, end: 20050126
  2. CARBAMAZEPINE [Concomitant]
  3. VALPROATE SODIUM [Concomitant]

REACTIONS (2)
  - ABNORMAL BEHAVIOUR [None]
  - AGGRESSION [None]
